FAERS Safety Report 5691923-4 (Version None)
Quarter: 2008Q2

REPORT INFORMATION
  Report Type: 
  Country: None (occurrence: None)
  Receive Date: 20080402
  Receipt Date: 20080325
  Transmission Date: 20081010
  Serious: Yes (Death, Hospitalization)
  Sender: FDA-Public Use
  Company Number: KR-ROCHE-554973

PATIENT
  Age: 72 Year
  Sex: Male
  Weight: 80 kg

DRUGS (18)
  1. CAPECITABINE [Suspect]
     Indication: GASTRIC CANCER
     Dosage: UNIT REPORTED AS 2000 MG, FREQUENCY REPORTED AS BID, DAY 1 TO DAY 14 EVERY 3 WEEKS.
     Route: 048
     Dates: start: 20080307
  2. BLINDED BEVACIZUMAB [Suspect]
     Indication: GASTRIC CANCER
     Dosage: FREQUENCY REPORTED AS DAY 1 OF CYCLE 1 UNTIL DISEASE PROGRESSION. DOSAGE FORM REPORTED AS INFUSION.
     Route: 042
     Dates: start: 20080307
  3. CISPLATIN [Suspect]
     Indication: GASTRIC CANCER
     Dosage: DOSE REPORTED AS 155 MG, FREQUENCY REPORTED AS DAY 1, EVERY 3 WEEKS.
     Route: 042
     Dates: start: 20080307
  4. LANSOPRAZOLE [Concomitant]
     Dates: start: 20080311, end: 20080323
  5. HEMOCONTIN [Concomitant]
     Dates: start: 20080312, end: 20080323
  6. SUCRALFATE [Concomitant]
     Dosage: DRUG NAME REPORTED AS SUCRALFATE SUSPENSION
     Dates: start: 20080311, end: 20080323
  7. NICORANDIL [Concomitant]
     Dates: start: 20040101, end: 20080323
  8. ATACAND HCT [Concomitant]
     Dates: start: 20040101, end: 20080323
  9. TRIMETAZIDINE HCL [Concomitant]
     Dates: start: 20040101
  10. TRIMETAZIDINE HCL [Concomitant]
     Dates: start: 20080315
  11. METFORMIN HCL [Concomitant]
     Dates: start: 20040101, end: 20080323
  12. ASPIRIN [Concomitant]
     Dates: start: 20040101, end: 20080323
  13. GINKGO BILOBA [Concomitant]
     Dosage: DRUG NAME REPORTED AS GINKGO BILOBA EXT.
     Dates: start: 20080311, end: 20080323
  14. ALLEGRA D 24 HOUR [Concomitant]
     Dates: start: 20080311, end: 20080323
  15. MEGESTROL ACETATE [Concomitant]
     Dosage: DRUG NAME REPORTED AS MEGESTROL ACETATE 40 MG/ML.
     Dates: start: 20080311, end: 20080323
  16. COUGH SYRUP [Concomitant]
     Dates: start: 20080311, end: 20080323
  17. BROMHEXINE HCL [Concomitant]
     Dates: start: 20080311, end: 20080323
  18. POLYSTYRENE SULFONATE [Concomitant]
     Dosage: DRUG NAME REPORTED AS POLYSTYRENE SULFONATE CALCIUM.
     Dates: start: 20080311, end: 20080323

REACTIONS (1)
  - GASTROINTESTINAL HAEMORRHAGE [None]
